FAERS Safety Report 22009576 (Version 1)
Quarter: 2023Q1

REPORT INFORMATION
  Report Type: Other
  Country: None (occurrence: CH)
  Receive Date: 20230220
  Receipt Date: 20230220
  Transmission Date: 20230418
  Serious: Yes (Other)
  Sender: FDA-Public Use
  Company Number: CH-CorePharma LLC-2138176

PATIENT
  Age: 84 Year
  Sex: Female

DRUGS (6)
  1. LISINOPRIL [Suspect]
     Active Substance: LISINOPRIL
     Indication: Product used for unknown indication
     Route: 065
  2. METOPROLOL [Suspect]
     Active Substance: METOPROLOL
     Route: 065
  3. ELASOMERAN [Suspect]
     Active Substance: ELASOMERAN
     Route: 065
  4. DIPYRONE [Suspect]
     Active Substance: DIPYRONE
     Route: 065
  5. ROSUVASTATIN [Suspect]
     Active Substance: ROSUVASTATIN
     Route: 065
  6. MEFENAMIC ACID [Suspect]
     Active Substance: MEFENAMIC ACID
     Route: 065

REACTIONS (1)
  - Pemphigoid [Unknown]
